FAERS Safety Report 8302313 (Version 2)
Quarter: 2013Q2

REPORT INFORMATION
  Report Type: Spontaneous
  Country: US (occurrence: None)
  Receive Date: 20111007
  Receipt Date: 20120508
  Transmission Date: 20140414
  Serious: Yes (Other)
  Sender: FDA-Public Use
  Company Number: 2011HGS-002522

PATIENT
  Age: 55 Year
  Sex: Female
  Weight: 80.74 kg

DRUGS (10)
  1. BENLYSTA [Suspect]
     Indication: SYSTEMIC LUPUS ERYTHEMATOSUS
     Route: 041
     Dates: start: 20110705
  2. PREDNISONE [Concomitant]
  3. PRILOSEC (OMEPRAZOLE) (OMEPRAZOLE) [Concomitant]
  4. ULTRAM (TRAMADOL HYDROCHLORIDE)(TRAMADOL HYDROCHLORIDE) [Concomitant]
  5. FLEXERIL (CYCLOBENZAPRINE HYDROCHLORIDE)(CYCLOBENZAPRINE HYDROCHLORIDE) [Concomitant]
  6. INDERAL [Concomitant]
  7. XANAX [Concomitant]
  8. MAXZIDE (DYAZIDE) (HYDROCHLOROTHIAZIDE, TRIAMTERENE) [Concomitant]
  9. TYLENOL (PARACETAMOL)(PARACETAMOL) [Concomitant]
  10. ZYRTEC [Concomitant]

REACTIONS (2)
  - URINARY TRACT INFECTION [None]
  - INSOMNIA [None]
